FAERS Safety Report 23315473 (Version 1)
Quarter: 2023Q4

REPORT INFORMATION
  Report Type: Spontaneous
  Country: US (occurrence: US)
  Receive Date: 20231219
  Receipt Date: 20231219
  Transmission Date: 20240110
  Serious: No
  Sender: FDA-Public Use
  Company Number: US-ORG100016242-2023000009

PATIENT
  Age: 18 Year

DRUGS (1)
  1. EXPAREL [Suspect]
     Active Substance: BUPIVACAINE
     Indication: Foot operation

REACTIONS (3)
  - Nystagmus [Not Recovered/Not Resolved]
  - Tachypnoea [Not Recovered/Not Resolved]
  - Heart rate increased [Not Recovered/Not Resolved]
